FAERS Safety Report 10968175 (Version 1)
Quarter: 2015Q1

REPORT INFORMATION
  Report Type: Report from Study
  Country: US (occurrence: US)
  Receive Date: 20150330
  Receipt Date: 20150330
  Transmission Date: 20150721
  Serious: Yes (Hospitalization)
  Sender: FDA-Public Use
  Company Number: US-ABBVIE-15P-163-1365416-00

PATIENT
  Age: 41 Year
  Sex: Male
  Weight: 80.81 kg

DRUGS (2)
  1. HUMIRA [Suspect]
     Active Substance: ADALIMUMAB
     Indication: PSORIATIC ARTHROPATHY
     Route: 058
     Dates: start: 20150309
  2. SYNTHROID [Concomitant]
     Active Substance: LEVOTHYROXINE SODIUM
     Indication: HYPOTHYROIDISM
     Route: 065

REACTIONS (8)
  - Diarrhoea [Recovering/Resolving]
  - Gastrointestinal hypomotility [Recovered/Resolved]
  - Pyrexia [Recovered/Resolved]
  - Ileus [Recovered/Resolved]
  - Hepatic enzyme increased [Recovering/Resolving]
  - Gastroenteritis [Recovering/Resolving]
  - Dysuria [Recovered/Resolved]
  - Nausea [Recovered/Resolved]

NARRATIVE: CASE EVENT DATE: 20150320
